FAERS Safety Report 8620214-4 (Version None)
Quarter: 2012Q3

REPORT INFORMATION
  Report Type: 
  Country: None (occurrence: None)
  Receive Date: 20120824
  Receipt Date: 20120817
  Transmission Date: 20120928
  Serious: Yes (Disabling, Other)
  Sender: FDA-Public Use
  Company Number: PHHO2012DE009996

PATIENT
  Sex: Female
  Weight: 62 kg

DRUGS (4)
  1. EXJADE [Suspect]
     Indication: IRON OVERLOAD
     Dosage: 500 MG, TID
     Route: 048
  2. INC424 [Suspect]
     Indication: MYELOFIBROSIS
  3. RED BLOOD CELLS [Concomitant]
  4. INC424 [Suspect]
     Indication: POLYCYTHAEMIA VERA
     Dosage: 15-10 MG
     Dates: start: 20111230

REACTIONS (2)
  - CATARACT [None]
  - MACULAR DEGENERATION [None]
